FAERS Safety Report 6052803-8 (Version None)
Quarter: 2009Q1

REPORT INFORMATION
  Report Type: 
  Country: None (occurrence: None)
  Receive Date: 20090127
  Receipt Date: 20090123
  Transmission Date: 20090719
  Serious: Yes (Other)
  Sender: FDA-Public Use
  Company Number: US-ASTRAZENECA-2008UW22259

PATIENT
  Age: 38 Year
  Sex: Male
  Weight: 77.1 kg

DRUGS (5)
  1. SEROQUEL [Suspect]
     Route: 048
     Dates: end: 20081001
  2. CRESTOR [Suspect]
     Dosage: STOPPED TAKING CRESTOR UNKNOWN TO CARDIOLOGIST
     Route: 048
  3. VYTORIN [Concomitant]
  4. PLAVIX [Concomitant]
  5. CLONAZEPAM [Concomitant]
     Indication: ANXIETY
     Route: 048
     Dates: start: 20070701

REACTIONS (2)
  - HYPERCHOLESTEROLAEMIA [None]
  - HYPERLIPIDAEMIA [None]
